FAERS Safety Report 8924080 (Version 3)
Quarter: 2013Q3

REPORT INFORMATION
  Report Type: Spontaneous
  Country: US (occurrence: US)
  Receive Date: 20121126
  Receipt Date: 20130823
  Transmission Date: 20140515
  Serious: Yes (Hospitalization)
  Sender: FDA-Public Use
  Company Number: US-VERTEX PHARMACEUTICAL INC.-2012-022464

PATIENT
  Age: 38 Year
  Sex: Female

DRUGS (18)
  1. KALYDECO [Suspect]
     Indication: CYSTIC FIBROSIS
     Dosage: 150 MG, BID
     Route: 048
     Dates: start: 201204
  2. PULMOZYME [Concomitant]
     Dosage: 2.5 MG, BID
  3. CAYSTON [Concomitant]
     Dosage: 75 MG, TID
  4. TOBI [Concomitant]
     Dosage: 300 MG, BID
  5. ACETAMINOPHEN [Concomitant]
     Dosage: 500 MG, PRN
  6. CALCIUM CARBONATE W/VITAMIN D [Concomitant]
     Dosage: UNK, QD
  7. LANSOPRAZOLE [Concomitant]
     Dosage: 30 MG, QD
     Route: 048
  8. PRENATAL W/FERRUM FUMARATE+FOLIC ACID [Concomitant]
     Dosage: UNK, QD
     Route: 048
  9. CALCIUM CARBONATE [Concomitant]
     Dosage: UNK, PRN
  10. VITAMIN D2 [Concomitant]
     Dosage: 50000 UNITS, QW
     Route: 048
  11. DOCUSATE SODIUM [Concomitant]
     Dosage: 100 MG, BID
     Route: 048
  12. CREON [Concomitant]
     Route: 048
  13. INSULIN [Concomitant]
     Dosage: UNK
  14. HYPERTONIC [Concomitant]
     Dosage: UNK, BID
     Route: 055
  15. BUDESONIDE [Concomitant]
     Indication: CYSTIC FIBROSIS
     Dosage: 180 ?G, BID
  16. MCG/ACT [Concomitant]
  17. FLONASE [Concomitant]
     Dosage: 2 SPRAYS EACH NOSTRIL DAILY
  18. ALBUTEROL [Concomitant]
     Dosage: UNK, QID

REACTIONS (2)
  - Infective pulmonary exacerbation of cystic fibrosis [Recovered/Resolved]
  - Exposure during pregnancy [Not Recovered/Not Resolved]
